FAERS Safety Report 8791811 (Version 4)
Quarter: 2012Q4

REPORT INFORMATION
  Report Type: Report from Study
  Country: CA (occurrence: CA)
  Receive Date: 20120918
  Receipt Date: 20121119
  Transmission Date: 20130627
  Serious: Yes (Death)
  Sender: FDA-Public Use
  Company Number: CA-SANOFI-AVENTIS-2012SA066263

PATIENT
  Age: 68 Year
  Sex: Male
  Weight: 76 kg

DRUGS (11)
  1. DOCETAXEL [Suspect]
     Indication: NON-SMALL CELL LUNG CANCER STAGE IV
     Dosage: every three weeks (day 1 of 21 day cycle)
     Route: 041
     Dates: start: 20120829, end: 20120829
  2. BLINDED THERAPY [Suspect]
     Indication: NON-SMALL CELL LUNG CANCER STAGE IV
     Dosage: every three weeks (day 1 of 21 day cycle)
     Route: 041
     Dates: start: 20120829, end: 20120829
  3. PAREMYD [Concomitant]
     Dates: start: 2000
  4. CANDESARTAN [Concomitant]
     Dates: start: 2000
  5. AMLODIPINE [Concomitant]
     Dates: start: 2000
  6. HYDROCHLOROTHIAZIDE [Concomitant]
     Dates: start: 2000
  7. ROSUVASTATIN [Concomitant]
     Dates: start: 2000
  8. ASAPHEN [Concomitant]
     Dates: start: 2000
  9. DILAUDID [Concomitant]
     Dates: start: 20120823
  10. MACROGOL [Concomitant]
     Dates: start: 20120826
  11. LYRICA [Concomitant]
     Dates: start: 20120829

REACTIONS (1)
  - Death [Fatal]
